FAERS Safety Report 7122969-7 (Version None)
Quarter: 2010Q4

REPORT INFORMATION
  Report Type: 
  Country: None (occurrence: None)
  Receive Date: 20101124
  Receipt Date: 20101116
  Transmission Date: 20110411
  Serious: Yes (Hospitalization)
  Sender: FDA-Public Use
  Company Number: US-GENENTECH-310067

PATIENT
  Age: 9 Month
  Sex: Female

DRUGS (4)
  1. RITUXIMAB [Suspect]
     Indication: IMMUNOSUPPRESSION
     Dosage: 375 MG/M2, UNK
     Dates: start: 20100802
  2. SUSPECTED DRUG [Suspect]
     Indication: GLYCOGEN STORAGE DISEASE TYPE II
     Dosage: 20 MG/KG, 1/WEEK
     Route: 042
     Dates: start: 20100803
  3. METHOTREXATE [Suspect]
     Indication: IMMUNOSUPPRESSION
     Dosage: 0.4 MG/KG, UNKNOWN
     Route: 065
     Dates: start: 20100803
  4. IMMUNE GLOBULIN NOS [Suspect]
     Indication: IMMUNOSUPPRESSION

REACTIONS (2)
  - RESPIRATORY DISTRESS [None]
  - TRACHEITIS [None]
